FAERS Safety Report 22194346 (Version 2)
Quarter: 2023Q2

REPORT INFORMATION
  Report Type: Spontaneous
  Country: US (occurrence: None)
  Receive Date: 20230411
  Receipt Date: 20230421
  Transmission Date: 20230722
  Serious: Yes (Life-Threatening, Hospitalization, Other)
  Sender: FDA-Public Use
  Company Number: US-MLMSERVICE-20230327-4191248-1

PATIENT
  Age: 30 Year
  Sex: Male

DRUGS (15)
  1. MEDROL [Suspect]
     Active Substance: METHYLPREDNISOLONE
     Indication: Periorbital oedema
     Route: 048
     Dates: start: 20210902
  2. MEDROL [Suspect]
     Active Substance: METHYLPREDNISOLONE
     Indication: Swelling face
  3. DELTASONE [Suspect]
     Active Substance: PREDNISONE
     Indication: Periorbital oedema
     Route: 048
     Dates: start: 20210921, end: 20210925
  4. DELTASONE [Suspect]
     Active Substance: PREDNISONE
     Indication: Swelling face
     Route: 048
     Dates: start: 20210724, end: 20210727
  5. PENICILLIN G [Concomitant]
     Active Substance: PENICILLIN G
     Indication: Secondary syphilis
     Dosage: UNKNOWN
     Route: 065
  6. DOXYCYCLINE [Concomitant]
     Active Substance: DOXYCYCLINE
     Indication: Swelling face
     Route: 065
     Dates: start: 2021
  7. DOXYCYCLINE [Concomitant]
     Active Substance: DOXYCYCLINE
     Indication: Periorbital oedema
  8. FLUCONAZOLE [Concomitant]
     Active Substance: FLUCONAZOLE
     Indication: Oesophageal candidiasis
     Dosage: UNKNOWN
     Route: 065
  9. FLUCONAZOLE [Concomitant]
     Active Substance: FLUCONAZOLE
     Indication: Oropharyngeal candidiasis
  10. FLUCONAZOLE [Concomitant]
     Active Substance: FLUCONAZOLE
     Indication: Oral candidiasis
  11. VANCOMYCIN [Concomitant]
     Active Substance: VANCOMYCIN
     Indication: Staphylococcal bacteraemia
     Dosage: UNKNOWN
     Route: 065
  12. EPINEPHRINE [Concomitant]
     Active Substance: EPINEPHRINE
     Indication: Periorbital oedema
     Dosage: UNKNOWN
     Route: 065
     Dates: start: 2021
  13. EPINEPHRINE [Concomitant]
     Active Substance: EPINEPHRINE
     Indication: Swelling face
  14. SULFAMETHOXAZOLE\TRIMETHOPRIM [Concomitant]
     Active Substance: SULFAMETHOXAZOLE\TRIMETHOPRIM
     Indication: Antifungal prophylaxis
     Dosage: UNKNOWN
     Route: 065
  15. VALGANCICLOVIR HYDROCHLORIDE [Concomitant]
     Active Substance: VALGANCICLOVIR HYDROCHLORIDE
     Indication: Cytomegalovirus viraemia
     Dosage: UNKNOWN
     Route: 065

REACTIONS (2)
  - Kaposi^s sarcoma [Unknown]
  - Condition aggravated [Unknown]

NARRATIVE: CASE EVENT DATE: 20210101
